FAERS Safety Report 9630666 (Version 1)
Quarter: 2013Q4

REPORT INFORMATION
  Report Type: Spontaneous
  Country: US (occurrence: None)
  Receive Date: 20131016
  Receipt Date: 20131016
  Transmission Date: 20140711
  Serious: Yes (Other)
  Sender: FDA-Public Use
  Company Number: None

PATIENT
  Age: 50 Year
  Sex: Male
  Weight: 99.34 kg

DRUGS (1)
  1. LITHIUM CARBONATE, 300 MG [Suspect]
     Indication: BIPOLAR I DISORDER
     Dosage: AT BEDTIME
     Route: 048
     Dates: start: 20130522, end: 20131001

REACTIONS (2)
  - Diarrhoea [None]
  - Faecal incontinence [None]
